FAERS Safety Report 12671052 (Version 2)
Quarter: 2016Q3

REPORT INFORMATION
  Report Type: Spontaneous
  Country: DE (occurrence: DE)
  Receive Date: 20160822
  Receipt Date: 20160916
  Transmission Date: 20161109
  Serious: Yes (Hospitalization, Other)
  Sender: FDA-Public Use
  Company Number: DE-ABBVIE-16K-062-1703093-00

PATIENT
  Age: 54 Year
  Sex: Female

DRUGS (2)
  1. CORTISONE [Concomitant]
     Active Substance: CORTISONE\HYDROCORTISONE
     Indication: CROHN^S DISEASE
  2. HUMIRA [Suspect]
     Active Substance: ADALIMUMAB
     Indication: CROHN^S DISEASE
     Route: 058
     Dates: start: 201407, end: 201607

REACTIONS (4)
  - Ileal stenosis [Recovering/Resolving]
  - Small intestinal perforation [Unknown]
  - Abdominal pain [Unknown]
  - Ileus [Unknown]

NARRATIVE: CASE EVENT DATE: 20160710
